FAERS Safety Report 6430410-2 (Version None)
Quarter: 2009Q4

REPORT INFORMATION
  Report Type: 
  Country: None (occurrence: None)
  Receive Date: 20091106
  Receipt Date: 20091028
  Transmission Date: 20100525
  Serious: Yes (Other)
  Sender: FDA-Public Use
  Company Number: JP-ELI_LILLY_AND_COMPANY-JP200910007689

PATIENT
  Age: 78 Year
  Sex: Female

DRUGS (2)
  1. GEMZAR [Suspect]
     Indication: BILE DUCT CANCER NON-RESECTABLE
     Dosage: 300 MG, OTHER
     Route: 042
  2. GEMZAR [Suspect]
     Dosage: 1000 MG, OTHER
     Route: 042

REACTIONS (1)
  - BILIARY FISTULA [None]
